FAERS Safety Report 20385081 (Version 1)
Quarter: 2022Q1

REPORT INFORMATION
  Report Type: Spontaneous
  Country: US (occurrence: US)
  Receive Date: 20220127
  Receipt Date: 20220127
  Transmission Date: 20220424
  Serious: No
  Sender: FDA-Public Use
  Company Number: US-ALLERGAN-2128049US

PATIENT
  Age: 35 Year
  Sex: Female

DRUGS (1)
  1. BOTOX [Suspect]
     Active Substance: ONABOTULINUMTOXINA
     Indication: Skin wrinkling
     Dosage: 40 UNITS, SINGLE
     Dates: start: 20210803, end: 20210803

REACTIONS (4)
  - Off label use [Unknown]
  - Blood pressure decreased [Unknown]
  - Syncope [Unknown]
  - Nausea [Unknown]

NARRATIVE: CASE EVENT DATE: 20210803
